FAERS Safety Report 4685700-0 (Version None)
Quarter: 2005Q2

REPORT INFORMATION
  Report Type: 
  Country: None (occurrence: None)
  Receive Date: 20050608
  Receipt Date: 20050527
  Transmission Date: 20051028
  Serious: Yes (Hospitalization, Other)
  Sender: FDA-Public Use
  Company Number: 2005-05-2056

PATIENT
  Age: 43 Year
  Sex: Male

DRUGS (4)
  1. RIBAVIRIN [Suspect]
     Indication: HEPATITIS C
     Dosage: 800--600 MG* ORAL
     Route: 048
     Dates: start: 20000201, end: 20000301
  2. RIBAVIRIN [Suspect]
     Indication: HEPATITIS C
     Dosage: 800--600 MG* ORAL
     Route: 048
     Dates: start: 20000201, end: 20000801
  3. RIBAVIRIN [Suspect]
     Indication: HEPATITIS C
     Dosage: 800--600 MG* ORAL
     Route: 048
     Dates: start: 20000301, end: 20000801
  4. INTERFERON INJECTABLE [Suspect]
     Indication: HEPATITIS C
     Dosage: 3 MIU TIW SUBCUTANEOUS
     Route: 058
     Dates: start: 20000201, end: 20000801

REACTIONS (10)
  - ANAEMIA [None]
  - ARTHRALGIA [None]
  - CROHN'S DISEASE [None]
  - GENERAL PHYSICAL HEALTH DETERIORATION [None]
  - JOINT EFFUSION [None]
  - LARGE INTESTINAL ULCER [None]
  - MICROCYTIC ANAEMIA [None]
  - PYODERMA GANGRENOSUM [None]
  - RECTAL HAEMORRHAGE [None]
  - WEIGHT DECREASED [None]
